FAERS Safety Report 16278573 (Version 1)
Quarter: 2019Q2

REPORT INFORMATION
  Report Type: Spontaneous
  Country: US (occurrence: US)
  Receive Date: 20190506
  Receipt Date: 20190506
  Transmission Date: 20190711
  Serious: Yes (Other)
  Sender: FDA-Public Use
  Company Number: US-BRACCO-2019US02154

PATIENT
  Sex: Female

DRUGS (2)
  1. MULTIHANCE [Suspect]
     Active Substance: GADOBENATE DIMEGLUMINE
     Indication: NUCLEAR MAGNETIC RESONANCE IMAGING
     Dosage: UNK, SINGLE
  2. MAGNEVIST [Suspect]
     Active Substance: GADOPENTETATE DIMEGLUMINE
     Indication: NUCLEAR MAGNETIC RESONANCE IMAGING

REACTIONS (13)
  - Cerebral disorder [Unknown]
  - Joint swelling [Unknown]
  - Bone pain [Unknown]
  - Pulmonary pain [Unknown]
  - Blindness [Unknown]
  - Gadolinium deposition disease [Unknown]
  - Nephrogenic systemic fibrosis [Unknown]
  - Anxiety [Unknown]
  - Back pain [Unknown]
  - Pain [Unknown]
  - Fluid retention [Unknown]
  - Arthralgia [Unknown]
  - Dry skin [Unknown]
